FAERS Safety Report 21485957 (Version 1)
Quarter: 2022Q4

REPORT INFORMATION
  Report Type: Spontaneous
  Country: CA (occurrence: CA)
  Receive Date: 20221020
  Receipt Date: 20221020
  Transmission Date: 20230113
  Serious: Yes (Other)
  Sender: FDA-Public Use
  Company Number: CA-PFIZER INC-202201067840

PATIENT
  Age: 35 Year
  Sex: Female

DRUGS (2)
  1. ABRILADA [Suspect]
     Active Substance: ADALIMUMAB-AFZB
     Indication: Hidradenitis
     Dosage: 1 DF, PREFILLED PEN. WEEK0:160MG,WEEK2:80MGTHEN 40MG EVERY OTHER WEEK STARTING WEEK4
     Route: 058
     Dates: start: 20220708
  2. ABRILADA [Suspect]
     Active Substance: ADALIMUMAB-AFZB
     Dosage: 1 DF, PREFILLED PEN. WEEK0:160MG,WEEK2:80MGTHEN 40MG EVERY OTHER WEEK STARTING WEEK4
     Route: 058

REACTIONS (2)
  - Sinus operation [Unknown]
  - Condition aggravated [Recovered/Resolved]

NARRATIVE: CASE EVENT DATE: 20220101
